FAERS Safety Report 7346319-6 (Version None)
Quarter: 2011Q1

REPORT INFORMATION
  Report Type: 
  Country: None (occurrence: None)
  Receive Date: 20110311
  Receipt Date: 20110214
  Transmission Date: 20110831
  Serious: No
  Sender: FDA-Public Use
  Company Number: US-B.I. PHARMACEUTICALS,INC./RIDGEFIELD-2011-BP-03926BP

PATIENT
  Sex: Female

DRUGS (7)
  1. CALCIUM [Concomitant]
     Indication: PROPHYLAXIS
  2. SYMBICORT [Concomitant]
     Indication: CHRONIC OBSTRUCTIVE PULMONARY DISEASE
  3. PREDNISONE [Concomitant]
     Indication: CHRONIC OBSTRUCTIVE PULMONARY DISEASE
  4. MAGNESIUM [Concomitant]
     Indication: PROPHYLAXIS
  5. SPIRIVA [Suspect]
     Indication: CHRONIC OBSTRUCTIVE PULMONARY DISEASE
     Dosage: 18 MCG
     Route: 055
     Dates: start: 20050101
  6. VITAMIN E [Concomitant]
     Indication: PROPHYLAXIS
  7. ASCORBIC ACID [Concomitant]
     Indication: PROPHYLAXIS

REACTIONS (3)
  - HYPERSENSITIVITY [None]
  - OSTEOPOROSIS [None]
  - DYSPNOEA [None]
